FAERS Safety Report 6585455-9 (Version None)
Quarter: 2010Q1

REPORT INFORMATION
  Report Type: 
  Country: None (occurrence: None)
  Receive Date: 20100216
  Receipt Date: 20100216
  Transmission Date: 20100710
  Serious: Yes (Hospitalization)
  Sender: FDA-Public Use
  Company Number: None

PATIENT
  Sex: Male
  Weight: 101 kg

DRUGS (2)
  1. CISPLATIN [Suspect]
     Dosage: 173 MG
     Dates: end: 20100201
  2. TAXOTERE [Suspect]
     Dosage: 173 MG
     Dates: end: 20100201

REACTIONS (4)
  - ABDOMINAL PAIN UPPER [None]
  - ASTHENIA [None]
  - BACTERIAL INFECTION [None]
  - DIARRHOEA [None]
